FAERS Safety Report 4943586-0 (Version None)
Quarter: 2006Q1

REPORT INFORMATION
  Report Type: 
  Country: None (occurrence: None)
  Receive Date: 20060310
  Receipt Date: 20060224
  Transmission Date: 20060701
  Serious: Yes (Life-Threatening)
  Sender: FDA-Public Use
  Company Number: 6020937

PATIENT
  Age: 65 Year
  Sex: Female

DRUGS (2)
  1. LEVOTHYROXINE SODIUM [Suspect]
     Indication: HYPOTHYROIDISM
     Dosage: 125 MCG (125 MCG, 1 IN 1 D) ORAL
     Route: 048
     Dates: start: 19830601
  2. EUROCAL (COLECALCIFEROL, CALCIUM CARBONATE) [Concomitant]

REACTIONS (4)
  - DRUG DOSE OMISSION [None]
  - HYPERTENSIVE CRISIS [None]
  - PHARMACEUTICAL PRODUCT COMPLAINT [None]
  - VISUAL DISTURBANCE [None]
